FAERS Safety Report 4686088-1 (Version None)
Quarter: 2005Q2

REPORT INFORMATION
  Report Type: 
  Country: None (occurrence: None)
  Receive Date: 20050609
  Receipt Date: 19940504
  Transmission Date: 20051028
  Serious: Yes (Other)
  Sender: FDA-Public Use
  Company Number: 199402792HAG

PATIENT
  Age: 65 Year
  Sex: Male

DRUGS (3)
  1. FRUSEMIDE [Suspect]
     Indication: MYOCARDIAL ISCHAEMIA
  2. AMIODARONE HYDROCHLORIDE [Suspect]
     Indication: CARDIAC DISORDER
     Route: 048
  3. CAPOTEN [Suspect]
     Indication: MYOCARDIAL ISCHAEMIA

REACTIONS (1)
  - HYPERTHYROIDISM [None]
